FAERS Safety Report 5624406-8 (Version None)
Quarter: 2008Q1

REPORT INFORMATION
  Report Type: 
  Country: None (occurrence: None)
  Receive Date: 20080211
  Receipt Date: 20080211
  Transmission Date: 20080703
  Serious: Yes (Other)
  Sender: FDA-Public Use
  Company Number: None

PATIENT
  Age: 20 Month
  Sex: Female
  Weight: 12.2471 kg

DRUGS (1)
  1. PHENOBARBITAL TAB [Suspect]
     Indication: CONVULSION
     Dosage: 7ML 2X PER DAY PO
     Route: 048
     Dates: start: 20060401

REACTIONS (5)
  - INSOMNIA [None]
  - NIGHTMARE [None]
  - SCREAMING [None]
  - SLEEP TALKING [None]
  - SLEEP TERROR [None]
